FAERS Safety Report 9678174 (Version 1)
Quarter: 2013Q4

REPORT INFORMATION
  Report Type: Spontaneous
  Country: US (occurrence: US)
  Receive Date: 20131108
  Receipt Date: 20131108
  Transmission Date: 20140711
  Serious: No
  Sender: FDA-Public Use
  Company Number: US-BAYER-2013-133597

PATIENT
  Age: 58 Year
  Sex: Female
  Weight: 56.69 kg

DRUGS (3)
  1. CLIMARA [Suspect]
     Indication: MENOPAUSE
     Dosage: 0.05 MG/D, OW
     Route: 062
     Dates: start: 201202, end: 201302
  2. CLIMARA [Suspect]
     Indication: MENOPAUSE
     Dosage: 0.05 MG/D, OW
     Route: 062
     Dates: start: 201304, end: 20131025
  3. PROMETRIUM [Concomitant]
     Indication: MENOPAUSE
     Dosage: 100 MG, QD
     Route: 048
     Dates: start: 2011

REACTIONS (2)
  - Application site rash [Not Recovered/Not Resolved]
  - Product adhesion issue [None]
